FAERS Safety Report 25600704 (Version 1)
Quarter: 2025Q3

REPORT INFORMATION
  Report Type: Report from Study
  Country: EU (occurrence: EU)
  Receive Date: 20250724
  Receipt Date: 20250724
  Transmission Date: 20251020
  Serious: Yes (Other)
  Sender: AUROBINDO
  Company Number: EU-AUROBINDO-AUR-APL-2019-002444

PATIENT

DRUGS (3)
  1. RIBAVIRIN [Suspect]
     Active Substance: RIBAVIRIN
     Indication: Hepatitis C
     Route: 065
  2. PEGINTERFERON ALFA-2B [Suspect]
     Active Substance: PEGINTERFERON ALFA-2B
     Indication: Hepatitis C
     Route: 065
  3. INCIVO [Suspect]
     Active Substance: TELAPREVIR
     Indication: Hepatitis C
     Route: 048

REACTIONS (4)
  - Rash [Unknown]
  - Depression [Unknown]
  - Suicidal ideation [Unknown]
  - Off label use [Unknown]
